FAERS Safety Report 7506818-0 (Version None)
Quarter: 2011Q2

REPORT INFORMATION
  Report Type: 
  Country: None (occurrence: None)
  Receive Date: 20110526
  Receipt Date: 20110511
  Transmission Date: 20111010
  Serious: Yes (Death)
  Sender: FDA-Public Use
  Company Number: A0928947A

PATIENT
  Sex: Female

DRUGS (3)
  1. TRASTUZUMAB [Concomitant]
  2. DOCETAXEL [Concomitant]
  3. TYKERB [Suspect]
     Indication: BREAST CANCER
     Dosage: 1500MG PER DAY
     Dates: start: 20110201

REACTIONS (1)
  - HEPATIC FAILURE [None]
